FAERS Safety Report 18560191 (Version 1)
Quarter: 2020Q4

REPORT INFORMATION
  Report Type: Spontaneous
  Country: IT (occurrence: IT)
  Receive Date: 20201130
  Receipt Date: 20201130
  Transmission Date: 20210114
  Serious: Yes (Other)
  Sender: FDA-Public Use
  Company Number: NVSC2020IT270378

PATIENT
  Age: 74 Year
  Sex: Female
  Weight: 85 kg

DRUGS (1)
  1. ALPRAZOLAM. [Suspect]
     Active Substance: ALPRAZOLAM
     Indication: MEDICATION ERROR
     Dosage: 40 DRP (DROP (1/12 MILLILITRE)
     Route: 048
     Dates: start: 20200927, end: 20200927

REACTIONS (3)
  - Product packaging confusion [Unknown]
  - Medication error [Unknown]
  - Depressed level of consciousness [Unknown]

NARRATIVE: CASE EVENT DATE: 20200927
